FAERS Safety Report 7941477-4 (Version None)
Quarter: 2011Q4

REPORT INFORMATION
  Report Type: 
  Country: None (occurrence: None)
  Receive Date: 20111128
  Receipt Date: 20111121
  Transmission Date: 20120403
  Serious: No
  Sender: FDA-Public Use
  Company Number: US-TEVA-310396USA

PATIENT
  Sex: Female
  Weight: 61.29 kg

DRUGS (3)
  1. PLAN B ONE-STEP [Suspect]
     Indication: POST COITAL CONTRACEPTION
     Dosage: 1.5 MILLIGRAM;
     Route: 048
     Dates: start: 20111013, end: 20111013
  2. NATURE-THYROID [Concomitant]
     Indication: AUTOIMMUNE THYROIDITIS
  3. PLAN B ONE-STEP [Suspect]
     Dosage: 1.5 MILLIGRAM;
     Route: 048
     Dates: start: 20111116, end: 20111116

REACTIONS (1)
  - MENSTRUATION IRREGULAR [None]
